FAERS Safety Report 5476555-5 (Version None)
Quarter: 2007Q3

REPORT INFORMATION
  Report Type: 
  Country: None (occurrence: None)
  Receive Date: 20070926
  Receipt Date: 20070513
  Transmission Date: 20080115
  Serious: Yes (Other)
  Sender: FDA-Public Use
  Company Number: 2007039592

PATIENT
  Sex: Male

DRUGS (1)
  1. ZYRTEC [Suspect]

REACTIONS (2)
  - CHILDHOOD PSYCHOSIS [None]
  - OVERDOSE [None]
